FAERS Safety Report 21899685 (Version 1)
Quarter: 2023Q1

REPORT INFORMATION
  Report Type: Spontaneous
  Country: GB (occurrence: GB)
  Receive Date: 20230123
  Receipt Date: 20230123
  Transmission Date: 20230417
  Serious: Yes (Other)
  Sender: FDA-Public Use
  Company Number: None

PATIENT
  Age: 29 Year
  Sex: Female
  Weight: 60 kg

DRUGS (5)
  1. DOXYCYCLINE [Suspect]
     Active Substance: DOXYCYCLINE
     Indication: Product used for unknown indication
     Dosage: 100 MILLIGRAM(TAKE TWO NOW THEN ONE DAILY FOR 4 DAYS TO TREAT)
     Route: 065
     Dates: start: 20230109
  2. AMOXICILLIN [Concomitant]
     Active Substance: AMOXICILLIN
     Dosage: 1 DOSAGE FORM, TID
     Route: 065
     Dates: start: 20230110
  3. Levest [Concomitant]
     Dosage: 1 DOSAGE FORM, QD (AT THE SAME TIME DAILY FOR 9 WEEKS FOLLOWED BY 4- 7 DAY BREAK. THEN REPEAT)
     Route: 065
     Dates: start: 20221123
  4. ALBUTEROL [Concomitant]
     Active Substance: ALBUTEROL
     Dosage: UNK (TAKE ONE OR TWO PUFFS WHEN REQUIRED FOR BREATH)
     Route: 065
     Dates: start: 20230110
  5. SOPROBEC [Concomitant]
     Dosage: 2 DOSAGE FORM, BID
     Route: 055
     Dates: start: 20230110

REACTIONS (3)
  - Malaise [Unknown]
  - Nausea [Unknown]
  - Vomiting [Unknown]
